FAERS Safety Report 19658593 (Version 3)
Quarter: 2021Q4

REPORT INFORMATION
  Report Type: Spontaneous
  Country: US (occurrence: US)
  Receive Date: 20210804
  Receipt Date: 20211018
  Transmission Date: 20220303
  Serious: No
  Sender: FDA-Public Use
  Company Number: NVSC2021US175787

PATIENT
  Sex: Male

DRUGS (1)
  1. XIIDRA [Suspect]
     Active Substance: LIFITEGRAST
     Indication: Product used for unknown indication
     Dosage: UNK (10 TIMES)
     Route: 065

REACTIONS (4)
  - Dry eye [Unknown]
  - Eye pain [Unknown]
  - Ocular discomfort [Unknown]
  - Vision blurred [Unknown]
